FAERS Safety Report 19259260 (Version 1)
Quarter: 2021Q2

REPORT INFORMATION
  Report Type: Spontaneous
  Country: SA (occurrence: SA)
  Receive Date: 20210514
  Receipt Date: 20210514
  Transmission Date: 20210717
  Serious: Yes (Other)
  Sender: FDA-Public Use
  Company Number: SA-GLAXOSMITHKLINE-SACH2021GSK027562

PATIENT
  Age: 13 Year
  Sex: Male

DRUGS (1)
  1. DICLOFENAC SODIUM. [Suspect]
     Active Substance: DICLOFENAC SODIUM
     Indication: PRODUCT USED FOR UNKNOWN INDICATION
     Dosage: UNK

REACTIONS (8)
  - Erythema multiforme [Recovered/Resolved]
  - Lip ulceration [Recovered/Resolved]
  - Oral discomfort [Recovered/Resolved]
  - Sleep disorder [Recovered/Resolved]
  - Dysphagia [Recovered/Resolved]
  - Lip scab [Recovered/Resolved]
  - Condition aggravated [Recovered/Resolved]
  - Oral disorder [Recovered/Resolved]
